FAERS Safety Report 13355265 (Version 1)
Quarter: 2017Q1

REPORT INFORMATION
  Report Type: Spontaneous
  Country: US (occurrence: US)
  Receive Date: 20170321
  Receipt Date: 20170321
  Transmission Date: 20170429
  Serious: No
  Sender: FDA-Public Use
  Company Number: US-BAUSCH-BL-2016-024242

PATIENT
  Sex: Female

DRUGS (2)
  1. OBAGI NU-DERM FX SYSTEM - NORMAL TO DRY [Suspect]
     Active Substance: OCTINOXATE\ZINC OXIDE
     Indication: PIGMENTATION DISORDER
     Route: 065
  2. TRETINOIN CREAM 0.025% [Suspect]
     Active Substance: TRETINOIN
     Indication: PIGMENTATION DISORDER

REACTIONS (2)
  - Drug ineffective for unapproved indication [Unknown]
  - Off label use [Unknown]
